FAERS Safety Report 6937196 (Version 7)
Quarter: 2016Q1

REPORT INFORMATION
  Report Type: Report from Study
  Country: JP (occurrence: JP)
  Receive Date: 20090313
  Receipt Date: 20160309
  Transmission Date: 20160526
  Serious: Yes (Hospitalization, Other)
  Sender: FDA-Public Use
  Company Number: PHHY2009JP08107

PATIENT
  Age: 76 Year
  Sex: Female
  Weight: 40 kg

DRUGS (15)
  1. ICL670A [Suspect]
     Active Substance: DEFERASIROX
     Dosage: 500 MG, QD (DAILY)
     Route: 048
     Dates: start: 20090703, end: 20091106
  2. ICL670A [Suspect]
     Active Substance: DEFERASIROX
     Dosage: 500 MG, QD
     Route: 048
     Dates: start: 20100108, end: 20100218
  3. ACINON [Concomitant]
     Active Substance: NIZATIDINE
     Indication: PRODUCT USED FOR UNKNOWN INDICATION
     Dosage: 150 MG, UNK
     Route: 048
     Dates: start: 20060206, end: 20090803
  4. ICL670A [Suspect]
     Active Substance: DEFERASIROX
     Indication: MYELODYSPLASTIC SYNDROME
     Dosage: 500 MG, QD (DAILY)
     Route: 048
     Dates: start: 20080802, end: 20081106
  5. ALLEGRA [Suspect]
     Active Substance: FEXOFENADINE HYDROCHLORIDE
     Indication: PRURITUS
     Dosage: 120 MG, QD
     Route: 048
     Dates: start: 20090501, end: 20090608
  6. JUZENTAIHOTO [Concomitant]
     Indication: MYELODYSPLASTIC SYNDROME
     Dosage: 7.5 G, UNK
     Route: 048
     Dates: start: 20060206, end: 20090803
  7. ICL670A [Suspect]
     Active Substance: DEFERASIROX
     Dosage: 1000 MG, QD (DAILY)
     Route: 048
     Dates: start: 20081107, end: 20090402
  8. ICL670A [Suspect]
     Active Substance: DEFERASIROX
     Dosage: 500 MG, QD (DAILY)
     Route: 048
     Dates: start: 20100108, end: 20100218
  9. ICL670A [Suspect]
     Active Substance: DEFERASIROX
     Dosage: 500 MG, QD (DAILY)
     Route: 048
     Dates: start: 20080802, end: 20081106
  10. ICL670A [Suspect]
     Active Substance: DEFERASIROX
     Dosage: 500 MG, QD
     Route: 048
     Dates: start: 20090703, end: 20091106
  11. URSO [Concomitant]
     Active Substance: URSODIOL
     Indication: PROPHYLAXIS
     Dosage: 150 MG, UNK
     Route: 048
     Dates: start: 20081127, end: 20090416
  12. ICL670A [Suspect]
     Active Substance: DEFERASIROX
     Dosage: 500 MG, QD (DAILY)
     Route: 048
     Dates: start: 20090403, end: 20090607
  13. ICL670A [Suspect]
     Active Substance: DEFERASIROX
     Dosage: 1000 MG, QD
     Route: 048
     Dates: start: 20081107, end: 20090402
  14. ICL670A [Suspect]
     Active Substance: DEFERASIROX
     Dosage: 500 MG, QD
     Route: 048
     Dates: start: 20090403, end: 20090607
  15. SODIUM CHLORIDE. [Concomitant]
     Active Substance: SODIUM CHLORIDE
     Indication: PRODUCT USED FOR UNKNOWN INDICATION
     Dosage: 4.5 G, UNK
     Route: 048
     Dates: start: 20080819, end: 20090803

REACTIONS (8)
  - Spinal compression fracture [Recovering/Resolving]
  - Inappropriate antidiuretic hormone secretion [Recovered/Resolved]
  - Drug ineffective [Unknown]
  - Osteoporosis [Recovering/Resolving]
  - Blood alkaline phosphatase increased [Recovered/Resolved]
  - Hyponatraemia [Recovered/Resolved]
  - Pruritus [Recovered/Resolved]
  - Agranulocytosis [Recovered/Resolved]

NARRATIVE: CASE EVENT DATE: 20080815
